FAERS Safety Report 9551414 (Version 1)
Quarter: 2013Q2

REPORT INFORMATION
  Report Type: Spontaneous
  Country: US (occurrence: None)
  Receive Date: 20130627
  Receipt Date: 20130627
  Transmission Date: 20140414
  Serious: No
  Sender: FDA-Public Use
  Company Number: 1000045201

PATIENT
  Age: 37 Year
  Sex: Female

DRUGS (2)
  1. LINZESS [Suspect]
     Indication: IRRITABLE BOWEL SYNDROME
     Dosage: 290 MCG ( 290 MCG, 1 IN 1 D), ORAL
     Route: 048
     Dates: start: 20130512, end: 20130513
  2. DILAUDID ( HYDROMORPHONE HYDROCHLORIDE) (HYDROMORPHONE HYDROCHLORIDE) [Concomitant]

REACTIONS (1)
  - Rash [None]
